FAERS Safety Report 7421513-4 (Version None)
Quarter: 2011Q2

REPORT INFORMATION
  Report Type: 
  Country: None (occurrence: None)
  Receive Date: 20110418
  Receipt Date: 20110412
  Transmission Date: 20111010
  Serious: Yes (Death)
  Sender: FDA-Public Use
  Company Number: US-AMGEN-USASP2011018742

PATIENT
  Sex: Male
  Weight: 76.19 kg

DRUGS (2)
  1. CORTICOSTEROIDS [Concomitant]
  2. NPLATE [Suspect]
     Indication: IDIOPATHIC THROMBOCYTOPENIC PURPURA
     Dosage: 298 A?G, UNK
     Dates: start: 20081103, end: 20100712

REACTIONS (1)
  - NEOPLASM MALIGNANT [None]
